FAERS Safety Report 4706409-0 (Version None)
Quarter: 2005Q2

REPORT INFORMATION
  Report Type: 
  Country: None (occurrence: None)
  Receive Date: 20050629
  Receipt Date: 20050408
  Transmission Date: 20051028
  Serious: No
  Sender: FDA-Public Use
  Company Number: 05P-163-0296868-00

PATIENT
  Age: 55 Year
  Sex: Female
  Weight: 69.8539 kg

DRUGS (9)
  1. HUMIRA [Suspect]
     Indication: RHEUMATOID ARTHRITIS
     Dosage: 40 MG, 1 IN 2 WK, SUBCUTANEOUS
     Route: 058
     Dates: start: 20040401, end: 20041201
  2. LEVOTHYROXINE SODIUM [Concomitant]
  3. COLESEVELAM HYDROCHLORIDE [Concomitant]
  4. FLUOXETINE HCL [Concomitant]
  5. ZOLPIDEM TARTRATE [Concomitant]
  6. CLONAZEPAM [Concomitant]
  7. VICODIN [Concomitant]
  8. HYDROCHLOROTHIAZIDE [Concomitant]
  9. ALENDRONATE SODIUM [Concomitant]

REACTIONS (3)
  - CELLULITIS [None]
  - INFECTION [None]
  - SINUSITIS [None]
